FAERS Safety Report 16544654 (Version 6)
Quarter: 2019Q4

REPORT INFORMATION
  Report Type: Report from Study
  Country: US (occurrence: US)
  Receive Date: 20190709
  Receipt Date: 20191224
  Transmission Date: 20200122
  Serious: Yes (Life-Threatening, Other)
  Sender: FDA-Public Use
  Company Number: US-TESAROUBC-2019-TSO01041-US

PATIENT
  Age: 48 Year
  Sex: Female
  Weight: 111 kg

DRUGS (8)
  1. MELATONIN [Concomitant]
     Active Substance: MELATONIN
     Indication: INSOMNIA
     Dosage: UNK
  2. NIRAPARIB [Suspect]
     Active Substance: NIRAPARIB
     Dosage: 100 MG, 8 PM WITHOUT FOOD
     Dates: start: 20190522
  3. NIRAPARIB [Suspect]
     Active Substance: NIRAPARIB
     Dosage: 100 MG DAILY PM W/ LIGHT SNACK
  4. ASPIRIN. [Concomitant]
     Active Substance: ASPIRIN
     Indication: PRODUCT USED FOR UNKNOWN INDICATION
     Dosage: UNK
  5. NIRAPARIB [Suspect]
     Active Substance: NIRAPARIB
     Dosage: 100 MG DAILY PM W/ LIGHT SNACK
  6. NIRAPARIB [Suspect]
     Active Substance: NIRAPARIB
     Indication: ENDOMETRIAL CANCER
     Dosage: 200 MG, QD
     Route: 048
     Dates: start: 201904, end: 2019
  7. NIRAPARIB [Suspect]
     Active Substance: NIRAPARIB
     Indication: MALIGNANT PERITONEAL NEOPLASM
     Dosage: 300 MG, QPM WITHOUT FOOD
     Route: 065
     Dates: start: 20190211, end: 20190227
  8. LEXAPRO [Concomitant]
     Active Substance: ESCITALOPRAM OXALATE
     Indication: PRODUCT USED FOR UNKNOWN INDICATION
     Dosage: 10 MG, UNK

REACTIONS (21)
  - Bone marrow failure [Recovered/Resolved]
  - Pyrexia [Not Recovered/Not Resolved]
  - Anaemia [Not Recovered/Not Resolved]
  - Blood pressure increased [Recovering/Resolving]
  - Scan abnormal [Unknown]
  - Dizziness [Recovered/Resolved]
  - Migraine [Unknown]
  - Vomiting [Not Recovered/Not Resolved]
  - Dyspepsia [Not Recovered/Not Resolved]
  - Nightmare [Recovered/Resolved]
  - Gastrooesophageal reflux disease [Unknown]
  - Thrombocytopenia [Recovered/Resolved]
  - Lymphadenopathy [Unknown]
  - Fatigue [Recovered/Resolved]
  - Photosensitivity reaction [Unknown]
  - Nausea [Not Recovered/Not Resolved]
  - Red blood cell count decreased [Recovered/Resolved]
  - Peripheral swelling [Not Recovered/Not Resolved]
  - Constipation [Not Recovered/Not Resolved]
  - Anxiety [Recovered/Resolved]
  - Headache [Not Recovered/Not Resolved]

NARRATIVE: CASE EVENT DATE: 20190227
